FAERS Safety Report 10432249 (Version 4)
Quarter: 2016Q1

REPORT INFORMATION
  Report Type: Spontaneous
  Country: JP (occurrence: JP)
  Receive Date: 20140905
  Receipt Date: 20160310
  Transmission Date: 20160525
  Serious: Yes (Hospitalization)
  Sender: FDA-Public Use
  Company Number: JP-ROCHE-1449894

PATIENT
  Age: 78 Year
  Sex: Female
  Weight: 46 kg

DRUGS (9)
  1. MIRCERA [Suspect]
     Active Substance: METHOXY POLYETHYLENE GLYCOL-EPOETIN BETA
     Indication: NEPHROGENIC ANAEMIA
     Route: 058
     Dates: start: 20140501, end: 2014
  2. FEBURIC [Suspect]
     Active Substance: FEBUXOSTAT
     Indication: HYPERURICAEMIA
     Route: 048
     Dates: end: 20140812
  3. UNISIA [Concomitant]
     Active Substance: AMLODIPINE BESYLATE\CANDESARTAN CILEXETIL
     Indication: HYPERTENSION
     Route: 048
  4. PROGRAF [Concomitant]
     Active Substance: TACROLIMUS\TACROLIMUS ANHYDROUS
     Indication: RHEUMATOID ARTHRITIS
     Dosage: BY 1MG AND 0.5MG1
     Route: 048
  5. MIRCERA [Suspect]
     Active Substance: METHOXY POLYETHYLENE GLYCOL-EPOETIN BETA
     Indication: NEPHROGENIC ANAEMIA
     Route: 058
     Dates: start: 201407
  6. RIZE (JAPAN) [Concomitant]
     Indication: INSOMNIA
     Route: 065
  7. MIRCERA [Suspect]
     Active Substance: METHOXY POLYETHYLENE GLYCOL-EPOETIN BETA
     Indication: NEPHROGENIC ANAEMIA
     Route: 058
     Dates: end: 2014
  8. SELBEX [Concomitant]
     Active Substance: TEPRENONE
     Indication: GASTRITIS
     Route: 065
  9. TAKEPRON [Suspect]
     Active Substance: LANSOPRAZOLE
     Indication: GASTRITIS
     Route: 048
     Dates: end: 20140812

REACTIONS (1)
  - Aplasia pure red cell [Not Recovered/Not Resolved]

NARRATIVE: CASE EVENT DATE: 20140812
